FAERS Safety Report 5196529-1 (Version None)
Quarter: 2006Q4

REPORT INFORMATION
  Report Type: 
  Country: None (occurrence: None)
  Receive Date: 20061227
  Receipt Date: 20061213
  Transmission Date: 20070319
  Serious: Yes (Disabling)
  Sender: FDA-Public Use
  Company Number: GXKR2006GB08158

PATIENT
  Age: 45 Year
  Sex: Female
  Weight: 55 kg

DRUGS (1)
  1. CLARITHROMYCIN [Suspect]
     Indication: BACTERIAL INFECTION
     Dosage: 500 MG, BID, ORAL
     Route: 048
     Dates: start: 20031029, end: 20031031

REACTIONS (4)
  - DIARRHOEA [None]
  - HAEMORRHAGE [None]
  - THROMBOCYTOPENIA [None]
  - VOMITING [None]
